FAERS Safety Report 19253735 (Version 1)
Quarter: 2021Q2

REPORT INFORMATION
  Report Type: Report from Study
  Country: US (occurrence: US)
  Receive Date: 20210513
  Receipt Date: 20210513
  Transmission Date: 20210717
  Serious: Yes (Other)
  Sender: FDA-Public Use
  Company Number: US-TAKEDA-US202003535

PATIENT
  Sex: Female

DRUGS (1)
  1. HUMAN NORMAL IMMUNOGLOBULIN; LIQUID [Suspect]
     Active Substance: HUMAN IMMUNOGLOBULIN G
     Indication: SELECTIVE IGG SUBCLASS DEFICIENCY
     Route: 042

REACTIONS (6)
  - Bronchitis [Unknown]
  - Nasopharyngitis [Unknown]
  - Insurance issue [Unknown]
  - Unevaluable event [Unknown]
  - Pericarditis [Unknown]
  - Multimorbidity [Unknown]
